FAERS Safety Report 6558665-4 (Version None)
Quarter: 2010Q1

REPORT INFORMATION
  Report Type: 
  Country: None (occurrence: None)
  Receive Date: 20100128
  Receipt Date: 20100128
  Transmission Date: 20100710
  Serious: Yes (Other)
  Sender: FDA-Public Use
  Company Number: None

PATIENT
  Age: 55 Year
  Sex: Male
  Weight: 99.7913 kg

DRUGS (1)
  1. FENOFIBRATE [Suspect]
     Indication: BLOOD TRIGLYCERIDES INCREASED
     Dosage: 160 MG 1 TABLET DAILY
     Dates: start: 20091112, end: 20091203

REACTIONS (3)
  - MOVEMENT DISORDER [None]
  - PAIN IN EXTREMITY [None]
  - RENAL INJURY [None]
